FAERS Safety Report 23398297 (Version 1)
Quarter: 2024Q1

REPORT INFORMATION
  Report Type: Spontaneous
  Country: None (occurrence: US)
  Receive Date: 20240112
  Receipt Date: 20240112
  Transmission Date: 20240409
  Serious: No
  Sender: FDA-Public Use
  Company Number: US-P+L Developments of Newyork Corporation-2151063

PATIENT
  Sex: Female

DRUGS (1)
  1. DOCOSANOL [Suspect]
     Active Substance: DOCOSANOL
     Indication: Product used for unknown indication
     Route: 065

REACTIONS (6)
  - Intentional product misuse [Unknown]
  - Feeling abnormal [Unknown]
  - Diarrhoea [Unknown]
  - Asthenia [Unknown]
  - Palpitations [Unknown]
  - Thirst [Unknown]
